FAERS Safety Report 8923789 (Version 2)
Quarter: 2013Q1

REPORT INFORMATION
  Report Type: Report from Study
  Country: CN (occurrence: CN)
  Receive Date: 20121126
  Receipt Date: 20130117
  Transmission Date: 20140127
  Serious: Yes (Hospitalization)
  Sender: FDA-Public Use
  Company Number: CN-ASTRAZENECA-2012SE88060

PATIENT
  Age: 28389 Day
  Sex: Female

DRUGS (6)
  1. AZD6140 [Suspect]
     Indication: CORONARY ARTERY DISEASE
     Route: 048
     Dates: start: 20120709, end: 20121110
  2. ATORVASTATIN [Concomitant]
     Indication: CORONARY ARTERY DISEASE
     Route: 048
  3. METOPROLOL [Concomitant]
     Indication: CORONARY ARTERY DISEASE
     Route: 048
  4. METOPROLOL [Concomitant]
     Indication: HYPERTENSION
     Route: 048
  5. COMPOUND DANSHEN DRIPPING PILL [Concomitant]
     Indication: CORONARY ARTERY DISEASE
     Route: 048
  6. ASA [Concomitant]
     Route: 048

REACTIONS (1)
  - Lung disorder [Not Recovered/Not Resolved]
